FAERS Safety Report 13902356 (Version 1)
Quarter: 2017Q3

REPORT INFORMATION
  Report Type: Spontaneous
  Country: US (occurrence: US)
  Receive Date: 20170824
  Receipt Date: 20170824
  Transmission Date: 20171127
  Serious: No
  Sender: FDA-Public Use
  Company Number: US-MATRIXX INITIATIVES, INC.-2025056

PATIENT
  Age: 66 Year
  Sex: Female
  Weight: 84.09 kg

DRUGS (6)
  1. ZICAM COLD REMEDY NASAL SPRAY [Suspect]
     Active Substance: HOMEOPATHICS
     Indication: NASOPHARYNGITIS
     Route: 045
  2. MUCINEX [Suspect]
     Active Substance: GUAIFENESIN
  3. SIMVASTATIN. [Concomitant]
     Active Substance: SIMVASTATIN
  4. FLUOXETINE [Concomitant]
     Active Substance: FLUOXETINE HYDROCHLORIDE
  5. ZICAM COLD REMEDY [Suspect]
     Active Substance: HOMEOPATHICS\ZINC ACETATE\ZINC GLUCONATE
     Route: 048
  6. ESTRADIOL. [Concomitant]
     Active Substance: ESTRADIOL

REACTIONS (2)
  - Anosmia [None]
  - Dysgeusia [None]
